FAERS Safety Report 5945805-0 (Version None)
Quarter: 2008Q4

REPORT INFORMATION
  Report Type: 
  Country: None (occurrence: None)
  Receive Date: 20081104
  Receipt Date: 20080815
  Transmission Date: 20090506
  Serious: Yes (Other)
  Sender: FDA-Public Use
  Company Number: 20046

PATIENT
  Age: 31 Year
  Sex: Female
  Weight: 53 kg

DRUGS (3)
  1. ACYCLOVIR [Suspect]
     Indication: ORAL HERPES
     Dosage: 400 MG BID
  2. NORGESTIMATE AND ETHINYL ESTRADIOL [Suspect]
     Indication: CONTRACEPTION
  3. ACYCLOVIR [Concomitant]

REACTIONS (3)
  - BACTERIAL INFECTION [None]
  - DRUG INTERACTION [None]
  - METRORRHAGIA [None]
